FAERS Safety Report 16973448 (Version 1)
Quarter: 2019Q4

REPORT INFORMATION
  Report Type: Spontaneous
  Country: US (occurrence: US)
  Receive Date: 20191030
  Receipt Date: 20191030
  Transmission Date: 20200122
  Serious: No
  Sender: FDA-Public Use
  Company Number: US-TEVA-2019-US-1128282

PATIENT
  Age: 72 Year
  Sex: Male

DRUGS (1)
  1. TEVA BUPRENORPHINE PATCHES [Suspect]
     Active Substance: BUPRENORPHINE
     Indication: PAIN
     Dosage: DOSE STRENGTH: 10 MCG/HR, PATCHES
     Route: 062
     Dates: start: 201907

REACTIONS (4)
  - Back pain [Recovered/Resolved]
  - Feeling jittery [Recovered/Resolved]
  - Chills [Recovered/Resolved]
  - Dysuria [Recovered/Resolved]

NARRATIVE: CASE EVENT DATE: 20191015
